FAERS Safety Report 9496879 (Version 3)
Quarter: 2014Q4

REPORT INFORMATION
  Report Type: Spontaneous
  Country: US (occurrence: US)
  Receive Date: 20130904
  Receipt Date: 20141121
  Transmission Date: 20150529
  Serious: Yes (Hospitalization, Other)
  Sender: FDA-Public Use
  Company Number: US-BAYER-2013-105127

PATIENT
  Age: 25 Year
  Sex: Female
  Weight: 61 kg

DRUGS (1)
  1. MIRENA [Suspect]
     Active Substance: LEVONORGESTREL
     Indication: CONTRACEPTION
     Dosage: 20 MCG/24HR, CONT
     Route: 015
     Dates: start: 20110728, end: 20130807

REACTIONS (7)
  - Abdominal adhesions [None]
  - Medical device pain [None]
  - Device issue [None]
  - Device dislocation [None]
  - Uterine perforation [None]
  - Injury [None]
  - Infection [None]

NARRATIVE: CASE EVENT DATE: 201207
